FAERS Safety Report 15255120 (Version 3)
Quarter: 2018Q3

REPORT INFORMATION
  Report Type: Spontaneous
  Country: US (occurrence: US)
  Receive Date: 20180808
  Receipt Date: 20180921
  Transmission Date: 20181010
  Serious: No
  Sender: FDA-Public Use
  Company Number: US-PFIZER INC-2018316543

PATIENT
  Age: 54 Year
  Sex: Female
  Weight: 82 kg

DRUGS (2)
  1. XELJANZ XR [Suspect]
     Active Substance: TOFACITINIB CITRATE
     Dosage: 11 MG, DAILY
     Route: 048
     Dates: start: 201805
  2. XELJANZ XR [Suspect]
     Active Substance: TOFACITINIB CITRATE
     Indication: RHEUMATOID ARTHRITIS
     Dosage: 11 MG, 1X/DAY
     Route: 048
     Dates: start: 201804

REACTIONS (3)
  - Product storage error [Unknown]
  - Drug ineffective [Not Recovered/Not Resolved]
  - Poor quality drug administered [Unknown]

NARRATIVE: CASE EVENT DATE: 201807
